FAERS Safety Report 4535648-7 (Version None)
Quarter: 2004Q4

REPORT INFORMATION
  Report Type: 
  Country: None (occurrence: None)
  Receive Date: 20041222
  Receipt Date: 20041222
  Transmission Date: 20050328
  Serious: Yes (Hospitalization)
  Sender: FDA-Public Use
  Company Number: None

PATIENT
  Sex: Male
  Weight: 9.0719 kg

DRUGS (3)
  1. THALIDOMIDE [Suspect]
     Indication: NON-SMALL CELL LUNG CANCER STAGE IV
     Dosage: 400 MG PO QD
     Route: 048
     Dates: start: 20041027
  2. IRINOTECAN HCL [Concomitant]
  3. GEMZAR [Concomitant]

REACTIONS (3)
  - CONFUSIONAL STATE [None]
  - VISUAL DISTURBANCE [None]
  - WORD SALAD [None]
